FAERS Safety Report 7943498-4 (Version None)
Quarter: 2011Q4

REPORT INFORMATION
  Report Type: 
  Country: None (occurrence: None)
  Receive Date: 20111122
  Receipt Date: 20110705
  Transmission Date: 20120403
  Serious: No
  Sender: FDA-Public Use
  Company Number: PHHY2011US60536

PATIENT
  Sex: Female

DRUGS (4)
  1. GILENYA [Suspect]
     Indication: MULTIPLE SCLEROSIS
     Dosage: 0.5 MG, DAILY, ORAL
     Route: 048
     Dates: start: 20110211
  2. OXYCODONE HCL [Concomitant]
  3. NEURONTIN [Concomitant]
  4. CYCLOBENZAPRINE [Concomitant]

REACTIONS (2)
  - VERTIGO [None]
  - FATIGUE [None]
